FAERS Safety Report 15966775 (Version 1)
Quarter: 2019Q1

REPORT INFORMATION
  Report Type: Spontaneous
  Country: JP (occurrence: JP)
  Receive Date: 20190215
  Receipt Date: 20190215
  Transmission Date: 20190418
  Serious: Yes (Other)
  Sender: FDA-Public Use
  Company Number: JP-BRISTOL-MYERS SQUIBB COMPANY-BMS-2018-106576

PATIENT
  Age: 7 Decade
  Sex: Male

DRUGS (1)
  1. OPDIVO [Suspect]
     Active Substance: NIVOLUMAB
     Indication: GASTRIC CANCER
     Dosage: 240 MG, Q2WK
     Route: 041
     Dates: start: 20180907, end: 20181005

REACTIONS (5)
  - Rash [Unknown]
  - Stevens-Johnson syndrome [Recovered/Resolved]
  - Pneumocystis jirovecii pneumonia [Recovered/Resolved]
  - Cutaneous symptom [Unknown]
  - Dermatitis [Recovered/Resolved]

NARRATIVE: CASE EVENT DATE: 20181101
